FAERS Safety Report 5338614-7 (Version None)
Quarter: 2007Q2

REPORT INFORMATION
  Report Type: 
  Country: None (occurrence: None)
  Receive Date: 20070322
  Receipt Date: 20060921
  Transmission Date: 20071010
  Serious: Yes (Other)
  Sender: FDA-Public Use
  Company Number: 200612893BCC

PATIENT
  Age: 30 Year
  Sex: Female
  Weight: 56.6996 kg

DRUGS (3)
  1. ALEVE [Suspect]
     Indication: BACK PAIN
     Dosage: SEE IMAGE
     Route: 049
     Dates: start: 20060701
  2. ALEVE [Suspect]
     Indication: BACK PAIN
     Dosage: SEE IMAGE
     Route: 049
     Dates: start: 20060701
  3. ALEVE [Suspect]
     Indication: BACK PAIN
     Dosage: SEE IMAGE
     Route: 049
     Dates: start: 20060701

REACTIONS (1)
  - BLOOD URINE PRESENT [None]
